FAERS Safety Report 21620135 (Version 1)
Quarter: 2022Q4

REPORT INFORMATION
  Report Type: Report from Study
  Country: US (occurrence: US)
  Receive Date: 20221121
  Receipt Date: 20221121
  Transmission Date: 20230113
  Serious: Yes (Hospitalization, Other)
  Sender: FDA-Public Use
  Company Number: US-BAUSCH-BL-2022-025537

PATIENT
  Age: 78 Year
  Sex: Male

DRUGS (12)
  1. XIFAXAN [Suspect]
     Active Substance: RIFAXIMIN
     Indication: Product used for unknown indication
     Route: 065
     Dates: start: 202109
  2. VITAMIN C [Concomitant]
     Active Substance: ASCORBIC ACID
     Indication: Product used for unknown indication
     Dosage: TAKE 1000 MG BY MOUTH DAILY.
     Route: 048
  3. DULCOLAX (BISACODYL) [Concomitant]
     Active Substance: BISACODYL
     Indication: Constipation
     Dosage: PLACE 10 MG RECTALLY AS NEEDED
     Route: 054
  4. FISH OIL [Concomitant]
     Active Substance: FISH OIL
     Indication: Product used for unknown indication
     Dosage: 1 CAP PO Q DAY, MAINTENANCE, 100 CAP, REFILLS: O
     Route: 048
  5. FERROUS SULFATE [Concomitant]
     Active Substance: FERROUS SULFATE
     Indication: Product used for unknown indication
     Dosage: TAKE 1 TABLET (65 MG IRON) BY MOUTH 2 (TWO) TIMES DAILY
     Route: 048
  6. LASIX [Concomitant]
     Active Substance: FUROSEMIDE
     Indication: Product used for unknown indication
     Dosage: TAKE 40 MG BY MOUTH 2 (TWO) TIMES DAILY.
     Route: 048
  7. NIZORAL [Concomitant]
     Active Substance: KETOCONAZOLE
     Indication: Product used for unknown indication
     Dosage: APPLY DAILY TO THE AFFECTED AREAS OF THE FACE
  8. NIZORAL [Concomitant]
     Active Substance: KETOCONAZOLE
     Dosage: SHAMPOO DAILY AND LEAVE ON 3-5 MINUTES THEN RINSE OFF
  9. ENULOSE [Concomitant]
     Active Substance: LACTULOSE
     Indication: Product used for unknown indication
     Dosage: 20GM/30ML ORAL SOL TAKE 45 ML (30 GM) BY MOUTH 3 (THREE) TIMES DAILY
     Route: 048
  10. LEVOXYL [Concomitant]
     Active Substance: LEVOTHYROXINE SODIUM
     Indication: Product used for unknown indication
     Dosage: TAKE 150 MCG BY MOUTH DAILY.
     Route: 048
  11. MAGNESIUM CHLORIDE [Concomitant]
     Active Substance: MAGNESIUM CHLORIDE
     Indication: Product used for unknown indication
     Dosage: TAKE BY MOUTH. OTC 500MG
     Route: 048
  12. SYNTHROID [Concomitant]
     Active Substance: LEVOTHYROXINE SODIUM
     Indication: Product used for unknown indication
     Route: 048

REACTIONS (5)
  - Urinary retention [Unknown]
  - Type 2 diabetes mellitus [Unknown]
  - Oedema [Unknown]
  - Condition aggravated [Unknown]
  - Ascites [Unknown]
